FAERS Safety Report 25598109 (Version 1)
Quarter: 2025Q3

REPORT INFORMATION
  Report Type: Spontaneous
  Country: PK (occurrence: PK)
  Receive Date: 20250723
  Receipt Date: 20250723
  Transmission Date: 20251020
  Serious: Yes (Death, Other)
  Sender: B. BRAUN MEDICAL INC.
  Company Number: PK-B. Braun Medical Inc.-PK-BBM-202502898

PATIENT
  Age: 95 Year
  Sex: Male

DRUGS (4)
  1. ACETAMINOPHEN [Suspect]
     Active Substance: ACETAMINOPHEN
     Indication: Pain
     Dosage: ACETAMINOPHEN 1000 MG TID
  2. ACETAMINOPHEN [Suspect]
     Active Substance: ACETAMINOPHEN
  3. ACETAMINOPHEN\TRAMADOL [Suspect]
     Active Substance: ACETAMINOPHEN\TRAMADOL
  4. ETORICOXIB [Suspect]
     Active Substance: ETORICOXIB
     Dosage: 60 MG OD

REACTIONS (1)
  - Pulmonary embolism [Fatal]
